FAERS Safety Report 5141338-2 (Version None)
Quarter: 2006Q4

REPORT INFORMATION
  Report Type: 
  Country: None (occurrence: None)
  Receive Date: 20061101
  Receipt Date: 20061019
  Transmission Date: 20070319
  Serious: Yes (Hospitalization)
  Sender: FDA-Public Use
  Company Number: NL-ROCHE-468122

PATIENT
  Age: 68 Year
  Sex: Female

DRUGS (4)
  1. CAPECITABINE [Suspect]
     Dosage: TWICE DAILY DAYS 1 TO 14 OF A THREE WEEK CYCLE.
     Route: 048
     Dates: start: 20060412
  2. CAPECITABINE [Suspect]
     Dosage: TWICE DAILY DAYS 1 TO 14 OF A THREE WEEK CYCLE.
     Route: 048
  3. BEVACIZUMAB [Suspect]
     Dosage: ON DAY ONE OF A THREE WEEK CYCLE.
     Route: 042
     Dates: start: 20060412
  4. OXALIPLATIN [Suspect]
     Dosage: ON DAY ONE OF A THREE WEEK CYCLE.
     Route: 042
     Dates: start: 20060412

REACTIONS (2)
  - EPILEPSY [None]
  - HEMIPARESIS [None]
